FAERS Safety Report 24216939 (Version 1)
Quarter: 2024Q3

REPORT INFORMATION
  Report Type: Spontaneous
  Country: US (occurrence: US)
  Receive Date: 20240816
  Receipt Date: 20240816
  Transmission Date: 20241016
  Serious: No
  Sender: SANOFI AVENTIS
  Company Number: US-SA-2023MK000085

PATIENT
  Age: 75 Year
  Sex: Male

DRUGS (3)
  1. AFREZZA [Suspect]
     Active Substance: INSULIN HUMAN
     Indication: Type 2 diabetes mellitus
     Dosage: TOTAL OF 48 UNITS A DAY, RANGING FROM 12-20 AT MEALS DEPENDING ON BG AND MEALS
     Dates: start: 202306
  2. AFREZZA [Suspect]
     Active Substance: INSULIN HUMAN
     Dosage: TOTAL OF 48 UNITS A DAY, RANGING FROM 12-20 AT MEALS DEPENDING ON BG AND MEALS
     Dates: start: 202306
  3. TRESIBA [Concomitant]
     Active Substance: INSULIN DEGLUDEC
     Indication: Type 2 diabetes mellitus
     Dosage: QDAY
     Route: 065

REACTIONS (3)
  - Retching [Unknown]
  - Cough [Not Recovered/Not Resolved]
  - Productive cough [Not Recovered/Not Resolved]
